FAERS Safety Report 9541028 (Version 1)
Quarter: 2013Q3

REPORT INFORMATION
  Report Type: Spontaneous
  Country: JO (occurrence: JO)
  Receive Date: 20130922
  Receipt Date: 20130922
  Transmission Date: 20140515
  Serious: Yes (Hospitalization)
  Sender: FDA-Public Use
  Company Number: JO-MYLANLABS-2013S1020496

PATIENT
  Age: 12 Year
  Sex: Male

DRUGS (9)
  1. ASPARAGINASE [Suspect]
     Indication: NON-HODGKIN^S LYMPHOMA
     Route: 065
  2. MERCAPTOPURINE [Suspect]
     Indication: NON-HODGKIN^S LYMPHOMA
     Route: 065
  3. VINCRISTINE [Concomitant]
     Indication: NON-HODGKIN^S LYMPHOMA
     Route: 065
  4. DAUNORUBICIN [Concomitant]
     Indication: NON-HODGKIN^S LYMPHOMA
     Route: 065
  5. PREDNISOLONE [Concomitant]
     Indication: NON-HODGKIN^S LYMPHOMA
     Route: 065
  6. CYCLOPHOSPHAMIDE [Concomitant]
     Indication: NON-HODGKIN^S LYMPHOMA
     Route: 065
     Dates: start: 2011
  7. CYTARABINE [Concomitant]
     Indication: NON-HODGKIN^S LYMPHOMA
     Route: 065
     Dates: start: 2011
  8. OCTREOTIDE [Concomitant]
     Dosage: INFUSION
     Route: 065
  9. METHOTREXATE [Concomitant]
     Indication: NON-HODGKIN^S LYMPHOMA
     Route: 065

REACTIONS (1)
  - Pancreatitis acute [Recovered/Resolved]
